FAERS Safety Report 15778230 (Version 1)
Quarter: 2018Q4

REPORT INFORMATION
  Report Type: Report from Study
  Country: US (occurrence: US)
  Receive Date: 20181231
  Receipt Date: 20181231
  Transmission Date: 20190205
  Serious: Yes (Hospitalization, Other)
  Sender: FDA-Public Use
  Company Number: US-ACTELION-A-US2018-182971

PATIENT
  Age: 81 Year
  Sex: Female

DRUGS (22)
  1. TYLENOL [Concomitant]
     Active Substance: ACETAMINOPHEN
     Dosage: 500 MG, 2 TABLETS, BID
     Dates: start: 2016
  2. VITAMIN E [Concomitant]
     Active Substance: .ALPHA.-TOCOPHEROL
     Dosage: 400 I/U, QD
  3. VITAMIN C [Concomitant]
     Active Substance: ASCORBIC ACID
     Dosage: 500 MG, QD
  4. FAMOTIDINE. [Concomitant]
     Active Substance: FAMOTIDINE
     Dosage: 40 MG, QD
     Dates: start: 2014
  5. OPSUMIT [Suspect]
     Active Substance: MACITENTAN
     Indication: PULMONARY ARTERIAL HYPERTENSION
     Dosage: UNK
     Route: 048
     Dates: start: 201811, end: 20181115
  6. L-LYSINE [Concomitant]
     Active Substance: LYSINE
     Dosage: 500 MG, BID
     Dates: start: 2016
  7. DULOXETINE. [Concomitant]
     Active Substance: DULOXETINE
     Dosage: 20 MG, QD
     Dates: start: 2014, end: 20181204
  8. PANTOPRAZOLE [Concomitant]
     Active Substance: PANTOPRAZOLE
     Dosage: 40 MG, BID
     Dates: start: 2014
  9. LORAZEPAM. [Concomitant]
     Active Substance: LORAZEPAM
     Dosage: 0.5 MG, QD, INCREASE TO 1 MG PRN
     Dates: start: 2008
  10. VITAMIN B COMPLEX [Concomitant]
     Active Substance: CYANOCOBALAMIN\DEXPANTHENOL\NIACINAMIDE\PYRIDOXINE HYDROCHLORIDE\RIBOFLAVIN 5^-PHOSPHATE SODIUM\THIAMINE HYDROCHLORIDE\VITAMIN B COMPLEX
     Dosage: UMG 1 TABLET DAILY
  11. HYDROXYZINE HCL [Concomitant]
     Active Substance: HYDROXYZINE HYDROCHLORIDE
     Dosage: 25 MG, QD
     Dates: start: 2014
  12. CALCIUM CITRATE [Concomitant]
     Active Substance: CALCIUM CITRATE
     Dosage: 600 MG, QD
     Dates: start: 2017
  13. ZINC. [Concomitant]
     Active Substance: ZINC
     Dosage: 500 MG, QD
  14. LORAZEPAM. [Concomitant]
     Active Substance: LORAZEPAM
     Dosage: UNK
     Dates: start: 20181205
  15. BENZONATATE. [Concomitant]
     Active Substance: BENZONATATE
     Dosage: 100 MG, TID
  16. VALACYCLOVIR [Concomitant]
     Active Substance: VALACYCLOVIR HYDROCHLORIDE
     Dosage: 1 G, BID
  17. FOLIC ACID. [Concomitant]
     Active Substance: FOLIC ACID
     Dosage: 400 MCG, QD, 2.5 TABS
     Dates: start: 2015
  18. DULOXETINE. [Concomitant]
     Active Substance: DULOXETINE
     Dosage: UNK
     Dates: start: 20181206
  19. MAGNESIUM [Concomitant]
     Active Substance: MAGNESIUM
     Dosage: 400 MG, UNK
  20. AMLODIPINE [Concomitant]
     Active Substance: AMLODIPINE BESYLATE
     Dosage: 5 MG, QD
     Dates: start: 2013
  21. SILDENAFIL. [Concomitant]
     Active Substance: SILDENAFIL
     Dosage: 20 MG, TID
     Dates: start: 201806
  22. METHOTREXATE. [Concomitant]
     Active Substance: METHOTREXATE
     Dosage: 0.6 ML, Q1WEEK
     Dates: start: 2016

REACTIONS (19)
  - Rhinovirus infection [Recovering/Resolving]
  - Pulmonary arterial hypertension [Not Recovered/Not Resolved]
  - Ankle fracture [Recovering/Resolving]
  - Malaise [Unknown]
  - Pulmonary oedema [Recovering/Resolving]
  - Gait disturbance [Recovering/Resolving]
  - Chest discomfort [Recovering/Resolving]
  - Confusional state [Recovered/Resolved]
  - Cough [Recovering/Resolving]
  - Fall [Recovered/Resolved]
  - Adverse drug reaction [Unknown]
  - Loss of consciousness [Recovered/Resolved]
  - Urinary tract infection [Recovering/Resolving]
  - Dyspnoea [Unknown]
  - Oropharyngeal pain [Recovering/Resolving]
  - Condition aggravated [Not Recovered/Not Resolved]
  - Anxiety [Recovered/Resolved]
  - Rhinorrhoea [Recovering/Resolving]
  - Headache [Recovering/Resolving]

NARRATIVE: CASE EVENT DATE: 2018
